FAERS Safety Report 9564087 (Version 4)
Quarter: 2014Q2

REPORT INFORMATION
  Report Type: Spontaneous
  Country: US (occurrence: US)
  Receive Date: 20130929
  Receipt Date: 20140528
  Transmission Date: 20141212
  Serious: No
  Sender: FDA-Public Use
  Company Number: US-009507513-1309USA013106

PATIENT
  Age: 21 Year
  Sex: Female
  Weight: 48.98 kg

DRUGS (3)
  1. IMPLANON [Suspect]
     Indication: CONTRACEPTION
     Dosage: 1 ROD, UNK
     Route: 059
     Dates: start: 20110221
  2. METRONIDAZOLE [Concomitant]
     Dosage: UNK
     Dates: start: 20130924
  3. VITAMINS (UNSPECIFIED) [Concomitant]

REACTIONS (3)
  - Unintended pregnancy [Unknown]
  - Medical device complication [Not Recovered/Not Resolved]
  - Drug dose omission [Unknown]
